FAERS Safety Report 23936806 (Version 1)
Quarter: 2024Q2

REPORT INFORMATION
  Report Type: Spontaneous
  Country: IT (occurrence: IT)
  Receive Date: 20240604
  Receipt Date: 20240604
  Transmission Date: 20240716
  Serious: Yes (Other)
  Sender: FDA-Public Use
  Company Number: IT-002147023-NVSC2024IT115245

PATIENT
  Sex: Female

DRUGS (1)
  1. KISQALI [Suspect]
     Active Substance: RIBOCICLIB
     Indication: Product used for unknown indication
     Dosage: 600 MG (PER DAY FOR 3-WEEK CYCLES EVERY MONTH)
     Route: 065
     Dates: start: 202401

REACTIONS (1)
  - Acute myocardial infarction [Unknown]
